FAERS Safety Report 6219223-4 (Version None)
Quarter: 2009Q2

REPORT INFORMATION
  Report Type: 
  Country: None (occurrence: None)
  Receive Date: 20090605
  Receipt Date: 20090605
  Transmission Date: 20091009
  Serious: No
  Sender: FDA-Public Use
  Company Number: None

PATIENT
  Age: 18 Month
  Sex: Female
  Weight: 11.3399 kg

DRUGS (1)
  1. CEFDINIR [Suspect]
     Indication: EAR INFECTION
     Dosage: 3.5 ML ONCE DAILY 10 DAYS PO
     Route: 048
     Dates: start: 20090603, end: 20090604

REACTIONS (12)
  - COUGH [None]
  - DERMATITIS [None]
  - DERMATITIS DIAPER [None]
  - EATING DISORDER [None]
  - ERYTHEMA [None]
  - FATIGUE [None]
  - IRRITABILITY [None]
  - MIDDLE INSOMNIA [None]
  - PYREXIA [None]
  - RHINORRHOEA [None]
  - SKIN LESION [None]
  - URTICARIA [None]
